FAERS Safety Report 8521837-3 (Version None)
Quarter: 2012Q3

REPORT INFORMATION
  Report Type: 
  Country: None (occurrence: None)
  Receive Date: 20120719
  Receipt Date: 20120608
  Transmission Date: 20120928
  Serious: No
  Sender: FDA-Public Use
  Company Number: US-BRISTOL-MYERS SQUIBB COMPANY-16541385

PATIENT
  Age: 65 Year
  Sex: Female

DRUGS (1)
  1. YERVOY [Suspect]
     Dosage: NO OF INFUSIONS:3
     Route: 042
     Dates: start: 20120404

REACTIONS (3)
  - FATIGUE [None]
  - WEIGHT INCREASED [None]
  - ERYTHEMA [None]
